FAERS Safety Report 7962228-3 (Version None)
Quarter: 2011Q4

REPORT INFORMATION
  Report Type: 
  Country: None (occurrence: None)
  Receive Date: 20111207
  Receipt Date: 20111201
  Transmission Date: 20120403
  Serious: Yes (Other)
  Sender: FDA-Public Use
  Company Number: PHHY2011NL78739

PATIENT
  Age: 47 Year
  Sex: Female

DRUGS (3)
  1. TASIGNA [Suspect]
     Dosage: 300 MG, BID
     Route: 048
  2. TASIGNA [Suspect]
     Indication: CHROMOSOME ANALYSIS ABNORMAL
     Dosage: 300 MG, BID
     Dates: start: 20110516
  3. TASIGNA [Suspect]
     Indication: CHRONIC MYELOID LEUKAEMIA
     Dosage: 200 MG, TID
     Route: 048

REACTIONS (3)
  - HYPERTENSION [None]
  - DIABETES MELLITUS [None]
  - INCORRECT DOSE ADMINISTERED [None]
